FAERS Safety Report 19725397 (Version 1)
Quarter: 2021Q3

REPORT INFORMATION
  Report Type: Other
  Country: CN (occurrence: CN)
  Receive Date: 20210819
  Receipt Date: 20210819
  Transmission Date: 20211014
  Serious: Yes (Other)
  Sender: FDA-Public Use
  Company Number: CN-ROCHE-2893528

PATIENT

DRUGS (5)
  1. BEVACIZUMAB. [Suspect]
     Active Substance: BEVACIZUMAB
     Indication: COLORECTAL CANCER METASTATIC
     Dosage: GIVEN ON DAY1
     Route: 042
  2. OXALIPLATIN. [Suspect]
     Active Substance: OXALIPLATIN
     Indication: COLORECTAL CANCER METASTATIC
     Dosage: GIVEN ON DAY1
     Route: 042
  3. FLUOROURACIL. [Suspect]
     Active Substance: FLUOROURACIL
     Indication: COLORECTAL CANCER METASTATIC
     Dosage: MICROPUMP INTRAVENOUS PUMPING, DAY 1, 1200 MG/M2/D*2 DAYS (46 ~ 48 HOURS TOTAL 2400 MG/M2
     Route: 042
  4. TRADITIONAL CHINESE MEDICINE DECOCTION (HERBALS) [Suspect]
     Active Substance: HERBALS
     Indication: COLORECTAL CANCER METASTATIC
     Dosage: GIVEN ONE DAY BEFORE CHEMOTHERAPY, DECOCTION, 1 DOSE PER DAY, EACH DOSE OF TRADITIONAL CHINESE MEDIC
     Route: 048
  5. CALCIUM FOLINATE [Suspect]
     Active Substance: LEUCOVORIN CALCIUM
     Indication: COLORECTAL CANCER METASTATIC
     Dosage: GIVEN ON DAY1
     Route: 042

REACTIONS (3)
  - Myelosuppression [Unknown]
  - Gastrointestinal toxicity [Unknown]
  - Hypoproteinaemia [Unknown]
